FAERS Safety Report 9108428 (Version 2)
Quarter: 2013Q2

REPORT INFORMATION
  Report Type: Spontaneous
  Country: US (occurrence: US)
  Receive Date: 20130222
  Receipt Date: 20130514
  Transmission Date: 20140414
  Serious: No
  Sender: FDA-Public Use
  Company Number: US-009507513-1302USA010063

PATIENT
  Age: 60 Year
  Sex: Male
  Weight: 58.96 kg

DRUGS (6)
  1. VICTRELIS [Suspect]
     Indication: HEPATITIS C
     Dosage: 800 MG, TID
     Route: 048
     Dates: start: 201208, end: 20130208
  2. RIBAVIRIN [Suspect]
     Indication: HEPATITIS C
  3. PEGINTRON [Suspect]
     Indication: HEPATITIS C
  4. XALATAN [Concomitant]
  5. ALPHAGAN [Concomitant]
  6. COSOPT [Concomitant]
     Route: 047

REACTIONS (7)
  - Lymphatic disorder [Unknown]
  - Red blood cell count decreased [Unknown]
  - Dysgeusia [Unknown]
  - Nausea [Unknown]
  - Fatigue [Unknown]
  - Anaemia [Recovered/Resolved]
  - Leukopenia [Recovered/Resolved]
